FAERS Safety Report 13230258 (Version 1)
Quarter: 2017Q1

REPORT INFORMATION
  Report Type: Spontaneous
  Country: US (occurrence: US)
  Receive Date: 20170214
  Receipt Date: 20170214
  Transmission Date: 20170428
  Serious: No
  Sender: FDA-Public Use
  Company Number: None

PATIENT
  Age: 21 Year
  Sex: Female

DRUGS (1)
  1. MAKENA [Suspect]
     Active Substance: HYDROXYPROGESTERONE CAPROATE
     Indication: PREGNANCY
     Dosage: 1ML
     Route: 030

REACTIONS (4)
  - Injection site swelling [None]
  - Injection site erythema [None]
  - Injection site pruritus [None]
  - Injection site bruising [None]

NARRATIVE: CASE EVENT DATE: 20170214
